FAERS Safety Report 17858873 (Version 1)
Quarter: 2020Q2

REPORT INFORMATION
  Report Type: Report from Study
  Country: None (occurrence: US)
  Receive Date: 20200604
  Receipt Date: 20200604
  Transmission Date: 20200714
  Serious: No
  Sender: FDA-Public Use
  Company Number: US-US WORLDMEDS, LLC-USW202004-000677

PATIENT
  Age: 75 Year
  Sex: Female
  Weight: 86.18 kg

DRUGS (1)
  1. APOKYN [Suspect]
     Active Substance: APOMORPHINE HYDROCHLORIDE
     Indication: PARKINSON^S DISEASE
     Route: 058
     Dates: start: 20191120

REACTIONS (3)
  - Nightmare [Unknown]
  - Contusion [Unknown]
  - Hallucination [Unknown]

NARRATIVE: CASE EVENT DATE: 20200406
